FAERS Safety Report 22313308 (Version 1)
Quarter: 2023Q2

REPORT INFORMATION
  Report Type: Spontaneous
  Country: US (occurrence: US)
  Receive Date: 20230512
  Receipt Date: 20230512
  Transmission Date: 20230722
  Serious: Yes (Other)
  Sender: FDA-Public Use
  Company Number: US-ABBVIE-4763995

PATIENT
  Weight: 63.502 kg

DRUGS (4)
  1. HUMIRA [Suspect]
     Active Substance: ADALIMUMAB
     Indication: Rheumatoid arthritis
     Route: 058
  2. HUMIRA [Suspect]
     Active Substance: ADALIMUMAB
     Route: 058
  3. XELJANZ [Suspect]
     Active Substance: TOFACITINIB CITRATE
     Indication: Product used for unknown indication
     Route: 065
  4. METHYLPREDNISOLONE [Concomitant]
     Active Substance: METHYLPREDNISOLONE
     Indication: Product used for unknown indication

REACTIONS (9)
  - Tuberculosis [Unknown]
  - Cardiac failure [Unknown]
  - Drug ineffective [Unknown]
  - Neoplasm malignant [Unknown]
  - Injection site reaction [Unknown]
  - Multiple sclerosis [Unknown]
  - Hepatitis B [Unknown]
  - Rheumatoid arthritis [Unknown]
  - Unevaluable event [Unknown]
